FAERS Safety Report 4743524-X (Version None)
Quarter: 2005Q3

REPORT INFORMATION
  Report Type: 
  Country: None (occurrence: None)
  Receive Date: 20050809
  Receipt Date: 20050728
  Transmission Date: 20060218
  Serious: Yes (Life-Threatening, Hospitalization, Other)
  Sender: FDA-Public Use
  Company Number: 2005098187

PATIENT
  Age: 72 Year
  Sex: Male

DRUGS (13)
  1. NORVASC [Suspect]
     Indication: HYPERTENSION
     Dosage: SEE IMAGE
     Route: 048
     Dates: start: 20040610, end: 20040623
  2. NORVASC [Suspect]
     Indication: HYPERTENSION
     Dosage: SEE IMAGE
     Route: 048
     Dates: start: 20050203, end: 20050303
  3. NORVASC [Suspect]
     Indication: HYPERTENSION
     Dosage: SEE IMAGE
     Route: 048
     Dates: start: 20050609, end: 20050601
  4. BLOPRESS (CANDESARTAN CILEXETIL) [Suspect]
     Indication: HYPERTENSION
     Dosage: 5 MG (QD), ORAL
     Route: 048
     Dates: start: 20030801, end: 20050622
  5. CARVEDILOL [Suspect]
     Indication: HYPERTENSION
     Dosage: 5 MG (5 MG, QD), ORAL
     Route: 048
     Dates: start: 20030801, end: 20050622
  6. SUNRYTHM (PILSICAINIDE HYDROCHLORIDE) [Concomitant]
  7. NELBON (NITRAZEPAM) [Concomitant]
  8. MUCODYNE (CARBOCISTEINE) [Concomitant]
  9. SUCRALFATE [Concomitant]
  10. CERNILTON (CERNITIN GBX, CERNITIN T60) [Concomitant]
  11. MYONAL (EPERISONE HYDROCHLORIDE) [Concomitant]
  12. PREDNISONE [Concomitant]
  13. HARNAL (TAMSULOSIN HYDROCHLORIDE) [Concomitant]

REACTIONS (6)
  - BLOOD PRESSURE INCREASED [None]
  - CATARACT [None]
  - DEPRESSED LEVEL OF CONSCIOUSNESS [None]
  - DIALYSIS [None]
  - NYSTAGMUS [None]
  - SHOCK [None]
